FAERS Safety Report 4410569-9 (Version None)
Quarter: 2004Q3

REPORT INFORMATION
  Report Type: 
  Country: None (occurrence: None)
  Receive Date: 20040726
  Receipt Date: 20040712
  Transmission Date: 20050211
  Serious: Yes (Other)
  Sender: FDA-Public Use
  Company Number: 2004047419

PATIENT
  Age: 68 Year
  Sex: Male
  Weight: 70 kg

DRUGS (5)
  1. DIFLUCAN [Suspect]
     Indication: CANDIDIASIS
     Dosage: 150 MG (150 MG, 1) ORAL
     Route: 048
     Dates: start: 20040616, end: 20040616
  2. FUROSEMIDE [Concomitant]
  3. LISINOPRIL [Concomitant]
  4. ATORVASTATIN CALCIUM [Concomitant]
  5. ASPIRIN [Concomitant]

REACTIONS (2)
  - CONTUSION [None]
  - PENIS DISORDER [None]
